FAERS Safety Report 5649286-6 (Version None)
Quarter: 2008Q1

REPORT INFORMATION
  Report Type: 
  Country: None (occurrence: None)
  Receive Date: 20080304
  Receipt Date: 20071202
  Transmission Date: 20080703
  Serious: No
  Sender: FDA-Public Use
  Company Number: US-BAYER-200810037NA

PATIENT
  Age: 12 Year
  Sex: Male

DRUGS (2)
  1. ULTRAVIST (PHARMACY BULK) [Suspect]
     Indication: COMPUTERISED TOMOGRAM
     Dosage: TOTAL DAILY DOSE: 100 ML  UNIT DOSE: 100 ML
     Route: 042
     Dates: start: 20071014, end: 20071014
  2. GASTROVIEW [Concomitant]

REACTIONS (2)
  - COUGH [None]
  - THROAT IRRITATION [None]
